FAERS Safety Report 18271654 (Version 1)
Quarter: 2020Q3

REPORT INFORMATION
  Report Type: Spontaneous
  Country: US (occurrence: US)
  Receive Date: 20200915
  Receipt Date: 20200915
  Transmission Date: 20201103
  Serious: Yes (Hospitalization, Disabling)
  Sender: FDA-Public Use
  Company Number: None

PATIENT
  Age: 43 Year
  Sex: Female
  Weight: 82 kg

DRUGS (1)
  1. IV IRON [Suspect]
     Active Substance: IRON
     Indication: IRON DEFICIENCY ANAEMIA
     Dosage: ?          OTHER FREQUENCY:UNKNOWN;?
     Route: 042
     Dates: start: 20200911, end: 20200911

REACTIONS (6)
  - Menorrhagia [None]
  - Infusion related reaction [None]
  - Ovarian cyst [None]
  - Neurologic neglect syndrome [None]
  - Aphasia [None]
  - Hemiparesis [None]

NARRATIVE: CASE EVENT DATE: 20200911
